FAERS Safety Report 6057269-X (Version None)
Quarter: 2009Q1

REPORT INFORMATION
  Report Type: 
  Country: None (occurrence: None)
  Receive Date: 20090129
  Receipt Date: 20080708
  Transmission Date: 20090719
  Serious: No
  Sender: FDA-Public Use
  Company Number: A0737748A

PATIENT
  Age: 42 Year
  Sex: Female

DRUGS (3)
  1. WELLBUTRIN [Suspect]
     Indication: DEPRESSION
     Route: 048
  2. ZOLOFT [Suspect]
     Indication: DEPRESSION
     Route: 048
  3. THERAFLU [Suspect]
     Dosage: 30ML PER DAY
     Route: 048
     Dates: start: 20080608, end: 20080608

REACTIONS (2)
  - DIZZINESS [None]
  - FEELING ABNORMAL [None]
